FAERS Safety Report 7246144-0 (Version None)
Quarter: 2011Q1

REPORT INFORMATION
  Report Type: 
  Country: None (occurrence: None)
  Receive Date: 20110126
  Receipt Date: 20110119
  Transmission Date: 20110831
  Serious: Yes (Disabling)
  Sender: FDA-Public Use
  Company Number: A0908769A

PATIENT
  Sex: Female

DRUGS (1)
  1. PAXIL [Suspect]
     Indication: GENERALISED ANXIETY DISORDER
     Route: 048

REACTIONS (13)
  - SUICIDAL IDEATION [None]
  - FALL [None]
  - GASTROINTESTINAL DISORDER [None]
  - MENTAL DISORDER [None]
  - CONCUSSION [None]
  - TINNITUS [None]
  - MALAISE [None]
  - INSOMNIA [None]
  - PERFORMANCE STATUS DECREASED [None]
  - FEELING ABNORMAL [None]
  - DIZZINESS [None]
  - PARAESTHESIA [None]
  - MIGRAINE [None]
